FAERS Safety Report 9635882 (Version 2)
Quarter: 2013Q4

REPORT INFORMATION
  Report Type: Spontaneous
  Country: US (occurrence: US)
  Receive Date: 20131021
  Receipt Date: 20131021
  Transmission Date: 20140711
  Serious: No
  Sender: FDA-Public Use
  Company Number: US-PURDUE-USA-2013-0103720

PATIENT
  Sex: Female
  Weight: 68.03 kg

DRUGS (1)
  1. BUTRANS [Suspect]
     Indication: PAIN
     Dosage: 10 MCG/HR, WEEKLY
     Route: 062
     Dates: start: 20130125, end: 20130521

REACTIONS (4)
  - Application site discolouration [Not Recovered/Not Resolved]
  - Drug administered at inappropriate site [Unknown]
  - Application site vesicles [Recovered/Resolved]
  - Rash [Unknown]
